FAERS Safety Report 25023947 (Version 1)
Quarter: 2025Q1

REPORT INFORMATION
  Report Type: Spontaneous
  Country: US (occurrence: None)
  Receive Date: 20250228
  Receipt Date: 20250228
  Transmission Date: 20250409
  Serious: No
  Sender: FDA-CTU
  Company Number: None

PATIENT
  Age: 62 Year
  Sex: Female

DRUGS (2)
  1. ADALIMUMAB-BWWD [Suspect]
     Active Substance: ADALIMUMAB-BWWD
     Indication: Rheumatoid arthritis
  2. ADALIMUMAB-BWWD [Suspect]
     Active Substance: ADALIMUMAB-BWWD

REACTIONS (2)
  - Rash pustular [None]
  - Rash pruritic [None]

NARRATIVE: CASE EVENT DATE: 20240830
